FAERS Safety Report 4981262-9 (Version None)
Quarter: 2006Q2

REPORT INFORMATION
  Report Type: 
  Country: None (occurrence: None)
  Receive Date: 20060418
  Receipt Date: 20050712
  Transmission Date: 20061013
  Serious: Yes (Hospitalization)
  Sender: FDA-Public Use
  Company Number: 212109

PATIENT
  Age: 46 Year
  Weight: 95.2 kg

DRUGS (10)
  1. BEVACIZUMAB (BEVACIZUMAB)PWDR + SOLVENT, INFUSION SOLN, 100MG [Suspect]
     Indication: NON-SMALL CELL LUNG CANCER
     Dosage: 1418 MG, Q3W, INTRAVENOUS
     Route: 042
     Dates: start: 20041102, end: 20050104
  2. ERLOTINIB NOT ADMINISTERED (NO DRUG ADMINISTERED) NOT APPLICABLE [Suspect]
     Indication: NON-SMALL CELL LUNG CANCER
  3. DOCETAXEL (DOCETAXEL) [Suspect]
     Indication: NON-SMALL CELL LUNG CANCER
     Dosage: 130 MG, Q3W, INTRAVENOUS
     Route: 042
     Dates: start: 20041102, end: 20050104
  4. LIPITOR [Concomitant]
  5. LASIX [Concomitant]
  6. COREG [Concomitant]
  7. PRINIVIL [Concomitant]
  8. POTASSIUM CHLORIDE [Concomitant]
  9. AMPICILLIN [Concomitant]
  10. ZOMETA [Concomitant]

REACTIONS (15)
  - DISEASE PROGRESSION [None]
  - DRUG INEFFECTIVE [None]
  - DUODENAL PERFORATION [None]
  - ESCHERICHIA URINARY TRACT INFECTION [None]
  - HAEMOGLOBIN DECREASED [None]
  - ILEUS [None]
  - INFECTION [None]
  - LUNG NEOPLASM [None]
  - PANCREATIC CYST [None]
  - PANCREATIC MASS [None]
  - PRODUCTIVE COUGH [None]
  - PULMONARY NECROSIS [None]
  - RASH [None]
  - SPUTUM CULTURE POSITIVE [None]
  - URINARY RETENTION [None]
